FAERS Safety Report 4960514-2 (Version None)
Quarter: 2006Q2

REPORT INFORMATION
  Report Type: 
  Country: None (occurrence: None)
  Receive Date: 20060403
  Receipt Date: 20060324
  Transmission Date: 20061013
  Serious: Yes (Other)
  Sender: FDA-Public Use
  Company Number: GB-JNJFOC-20060306306

PATIENT
  Age: 63 Year
  Sex: Male

DRUGS (9)
  1. RISPERDAL [Suspect]
     Route: 065
  2. RISPERDAL [Suspect]
     Indication: DRUG USE FOR UNKNOWN INDICATION
     Route: 065
  3. LANZOPRAZOLE [Concomitant]
  4. TEMAZEPAM [Concomitant]
  5. ACETAMINOPHEN [Concomitant]
  6. TRIHEXYPHENIDYL HCL [Concomitant]
  7. LOFEPRAMINE [Concomitant]
  8. PENICILLIN [Concomitant]
  9. SILDENIFIL [Concomitant]

REACTIONS (2)
  - HEART RATE IRREGULAR [None]
  - MYOCARDIAL ISCHAEMIA [None]
